FAERS Safety Report 23639329 (Version 1)
Quarter: 2024Q1

REPORT INFORMATION
  Report Type: Spontaneous
  Country: FR (occurrence: FR)
  Receive Date: 20240316
  Receipt Date: 20240316
  Transmission Date: 20240410
  Serious: Yes (Hospitalization)
  Sender: FDA-Public Use
  Company Number: FR-AFSSAPS-NC2024000241

PATIENT
  Age: 55 Year
  Sex: Female
  Weight: 74.5 kg

DRUGS (1)
  1. SERTRALINE HYDROCHLORIDE [Suspect]
     Active Substance: SERTRALINE HYDROCHLORIDE
     Indication: Antidepressant therapy
     Dosage: 50 MILLIGRAM, ONCE A DAY
     Route: 048
     Dates: start: 20231030, end: 20231107

REACTIONS (1)
  - Action tremor [Recovered/Resolved]

NARRATIVE: CASE EVENT DATE: 20231107
